FAERS Safety Report 7208059-3 (Version None)
Quarter: 2011Q1

REPORT INFORMATION
  Report Type: 
  Country: None (occurrence: None)
  Receive Date: 20110104
  Receipt Date: 20110103
  Transmission Date: 20110831
  Serious: No
  Sender: FDA-Public Use
  Company Number: US-PFIZER INC-2009295609

PATIENT
  Sex: Female
  Weight: 68 kg

DRUGS (2)
  1. LYRICA [Suspect]
     Indication: NERVE COMPRESSION
     Dosage: 100 MG, 1X/DAY
     Route: 048
     Dates: start: 20090901
  2. EFFEXOR [Suspect]
     Dosage: UNK

REACTIONS (1)
  - FLATULENCE [None]
